FAERS Safety Report 14114496 (Version 2)
Quarter: 2018Q3

REPORT INFORMATION
  Report Type: Spontaneous
  Country: US (occurrence: US)
  Receive Date: 20171023
  Receipt Date: 20180918
  Transmission Date: 20181010
  Serious: No
  Sender: FDA-Public Use
  Company Number: US-PFIZER INC-2017454839

PATIENT
  Age: 65 Year
  Sex: Female
  Weight: 66 kg

DRUGS (3)
  1. IBRANCE [Suspect]
     Active Substance: PALBOCICLIB
     Indication: BREAST CANCER METASTATIC
     Dosage: 125 MG, CYCLIC (ONE A DAY BY MOUTH, TAKE IT 3 WEEKS ON AND 1 WEEK OFF)
     Route: 048
     Dates: start: 2016
  2. MARINOL [Suspect]
     Active Substance: DRONABINOL
     Indication: PAIN
     Dosage: UNK, 1X/DAY AT 2.5 (UNITS WERE NOT PROVIDED) ONCE DAY BEFORE BED)
     Route: 048
     Dates: start: 201704, end: 201704
  3. LETROZOLE. [Concomitant]
     Active Substance: LETROZOLE
     Dosage: 2.5 MG, 1X/DAY
     Route: 048
     Dates: start: 2016

REACTIONS (4)
  - Psychomotor hyperactivity [Recovered/Resolved]
  - Full blood count decreased [Unknown]
  - Gait disturbance [Recovered/Resolved]
  - Feeling abnormal [Recovered/Resolved]

NARRATIVE: CASE EVENT DATE: 201704
